FAERS Safety Report 4431268-3 (Version None)
Quarter: 2004Q3

REPORT INFORMATION
  Report Type: 
  Country: None (occurrence: None)
  Receive Date: 20040823
  Receipt Date: 20040823
  Transmission Date: 20050211
  Serious: No
  Sender: FDA-Public Use
  Company Number: None

PATIENT
  Age: 51 Year
  Sex: Female
  Weight: 58.9676 kg

DRUGS (1)
  1. ACTONEL [Suspect]
     Indication: OSTEOPENIA
     Dosage: 35 MG  ONCE A WEE
     Dates: start: 20040808, end: 20040815

REACTIONS (8)
  - ACTIVITIES OF DAILY LIVING IMPAIRED [None]
  - ARTHRALGIA [None]
  - BONE PAIN [None]
  - DIFFICULTY IN WALKING [None]
  - FATIGUE [None]
  - MUSCULAR WEAKNESS [None]
  - PAIN [None]
  - PAINFUL RESPIRATION [None]
